FAERS Safety Report 7639161-X (Version None)
Quarter: 2011Q3

REPORT INFORMATION
  Report Type: 
  Country: None (occurrence: None)
  Receive Date: 20110721
  Receipt Date: 20110707
  Transmission Date: 20111222
  Serious: Yes (Death, Other)
  Sender: FDA-Public Use
  Company Number: MC201100160

PATIENT
  Age: 13 Day
  Sex: Female

DRUGS (8)
  1. GENTAMICIN SULFATE [Concomitant]
  2. HEPARIN [Concomitant]
  3. DOBUTAMINE HCL [Concomitant]
  4. ANGIOMAX [Suspect]
     Indication: WHITE CLOT SYNDROME
     Dosage: SEE IMAGE
     Route: 042
  5. SODIUM NITROPRUSSIDE [Concomitant]
  6. AMPICILLIN SODIUM [Concomitant]
  7. PHENTOLAMINE MESYLATE [Concomitant]
  8. DOPAMINE HCL [Concomitant]

REACTIONS (7)
  - HEPATIC FAILURE [None]
  - RENAL FAILURE [None]
  - COAGULOPATHY [None]
  - GENERALISED OEDEMA [None]
  - THROMBOCYTOPENIA [None]
  - GENERAL PHYSICAL HEALTH DETERIORATION [None]
  - OFF LABEL USE [None]
